FAERS Safety Report 5887823-7 (Version None)
Quarter: 2008Q3

REPORT INFORMATION
  Report Type: 
  Country: None (occurrence: None)
  Receive Date: 20080916
  Receipt Date: 20080902
  Transmission Date: 20090109
  Serious: Yes (Hospitalization)
  Sender: FDA-Public Use
  Company Number: 238296J08USA

PATIENT
  Age: 36 Year
  Sex: Male
  Weight: 81.6475 kg

DRUGS (2)
  1. REBIF [Suspect]
     Indication: MULTIPLE SCLEROSIS
     Dosage: 44 MCG, 3 IN 1 WEEKS, SUBCUTANEOUS
     Route: 058
  2. NORCO [Concomitant]

REACTIONS (2)
  - HAEMOPTYSIS [None]
  - PNEUMONIA [None]
